FAERS Safety Report 16637814 (Version 1)
Quarter: 2019Q3

REPORT INFORMATION
  Report Type: Report from Study
  Country: US (occurrence: US)
  Receive Date: 20190726
  Receipt Date: 20190726
  Transmission Date: 20191004
  Serious: Yes (Death)
  Sender: FDA-Public Use
  Company Number: US-TAIHO ONCOLOGY  INC-EU-2019-02504

PATIENT
  Sex: Male

DRUGS (2)
  1. FENTANIL [Concomitant]
     Active Substance: FENTANYL
     Dosage: NI
  2. LONSURF [Suspect]
     Active Substance: TIPIRACIL HYDROCHLORIDE\TRIFLURIDINE
     Indication: COLON CANCER
     Dosage: CURRENT CYCLE UNKNOWN.?REPORTED AS NEVER DISPENSED
     Route: 048

REACTIONS (1)
  - Death [Fatal]
